FAERS Safety Report 7768934-8 (Version None)
Quarter: 2011Q3

REPORT INFORMATION
  Report Type: 
  Country: None (occurrence: None)
  Receive Date: 20110922
  Receipt Date: 20110309
  Transmission Date: 20111222
  Serious: No
  Sender: FDA-Public Use
  Company Number: US-ASTRAZENECA-2011SE13639

PATIENT
  Age: 18039 Day
  Sex: Female

DRUGS (3)
  1. PAXIL [Concomitant]
     Indication: BIPOLAR DISORDER
  2. SEROQUEL XR [Suspect]
     Indication: BIPOLAR DISORDER
     Route: 048
     Dates: start: 20110101
  3. KLONOPIN [Concomitant]
     Indication: ANXIETY

REACTIONS (2)
  - INSOMNIA [None]
  - FEELING JITTERY [None]
